FAERS Safety Report 5634911-6 (Version None)
Quarter: 2008Q1

REPORT INFORMATION
  Report Type: 
  Country: None (occurrence: None)
  Receive Date: 20080221
  Receipt Date: 20080221
  Transmission Date: 20080703
  Serious: No
  Sender: FDA-Public Use
  Company Number: None

PATIENT
  Sex: Female
  Weight: 86.1834 kg

DRUGS (1)
  1. FLUOXETINE [Suspect]
     Indication: DEPRESSION
     Dosage: 20 MG TID PO
     Route: 048
     Dates: start: 20080125, end: 20080205

REACTIONS (3)
  - DEPRESSION [None]
  - DYSURIA [None]
  - SOMNOLENCE [None]
